FAERS Safety Report 6795787-7 (Version None)
Quarter: 2010Q2

REPORT INFORMATION
  Report Type: 
  Country: None (occurrence: None)
  Receive Date: 20100625
  Receipt Date: 20100617
  Transmission Date: 20101027
  Serious: Yes (Other)
  Sender: FDA-Public Use
  Company Number: GXKR2010AT06292

PATIENT
  Age: 80 Year
  Sex: Female
  Weight: 77.5 kg

DRUGS (5)
  1. SEDACORON (NGX) [Suspect]
     Dosage: 450 MG GIVEN IN 2 HOURS FOR 8 DAYS
     Route: 042
  2. SEDACORON (NGX) [Suspect]
     Dosage: 600 MG, UNK
     Route: 048
  3. BETA BLOCKING AGENTS [Concomitant]
     Route: 065
  4. BETA BLOCKING AGENTS [Concomitant]
     Dosage: REDUCED TO HALF THE DOSAGE
     Route: 065
  5. LANITOP [Concomitant]

REACTIONS (11)
  - ATRIAL FIBRILLATION [None]
  - BLOOD PRESSURE INCREASED [None]
  - CYANOSIS [None]
  - DECREASED APPETITE [None]
  - ERYTHEMA [None]
  - OEDEMA PERIPHERAL [None]
  - OVERDOSE [None]
  - PAIN IN EXTREMITY [None]
  - PARAESTHESIA [None]
  - SKIN DISORDER [None]
  - THROMBOSIS [None]
